FAERS Safety Report 6321258-8 (Version None)
Quarter: 2009Q3

REPORT INFORMATION
  Report Type: 
  Country: None (occurrence: None)
  Receive Date: 20090822
  Receipt Date: 20090107
  Transmission Date: 20100115
  Serious: No
  Sender: FDA-Public Use
  Company Number: US-ABBOTT-09P-163-0496429-00

PATIENT
  Sex: Male
  Weight: 59.02 kg

DRUGS (2)
  1. NIASPAN [Suspect]
     Indication: BLOOD CHOLESTEROL INCREASED
     Route: 048
     Dates: start: 20070101
  2. TIZANIDINE HCL [Concomitant]
     Indication: FIBROMYALGIA

REACTIONS (3)
  - EXPIRED DRUG ADMINISTERED [None]
  - HYPOAESTHESIA [None]
  - HYPOAESTHESIA FACIAL [None]
